FAERS Safety Report 10338183 (Version 1)
Quarter: 2014Q3

REPORT INFORMATION
  Report Type: Report from Study
  Country: US (occurrence: US)
  Receive Date: 20140724
  Receipt Date: 20140724
  Transmission Date: 20150326
  Serious: Yes (Death)
  Sender: FDA-Public Use
  Company Number: PHEH2014US014666

PATIENT
  Age: 51 Year
  Sex: Female

DRUGS (1)
  1. GLEEVEC [Suspect]
     Active Substance: IMATINIB MESYLATE
     Indication: HAEMATOPOIETIC NEOPLASM
     Dosage: 200 MG, DAILY
     Route: 048
     Dates: start: 20140422

REACTIONS (1)
  - Death [Fatal]

NARRATIVE: CASE EVENT DATE: 20140721
